FAERS Safety Report 14182970 (Version 6)
Quarter: 2018Q3

REPORT INFORMATION
  Report Type: Spontaneous
  Country: BR (occurrence: BR)
  Receive Date: 20171113
  Receipt Date: 20180726
  Transmission Date: 20181010
  Serious: Yes (Hospitalization, Other)
  Sender: FDA-Public Use
  Company Number: BR-GLAXOSMITHKLINE-BR2017GSK105804

PATIENT
  Sex: Female
  Weight: 70 kg

DRUGS (5)
  1. TRAMAL (TRAMADOL HYDROCHLORIDE) [Concomitant]
     Indication: PRODUCT USED FOR UNKNOWN INDICATION
     Dosage: 50 MG, TID
  2. BENLYSTA [Suspect]
     Active Substance: BELIMUMAB
     Indication: PRODUCT USED FOR UNKNOWN INDICATION
     Dosage: 400 MG, UNK
     Dates: start: 20170628
  3. PREDNISONE. [Concomitant]
     Active Substance: PREDNISONE
     Indication: PAIN
     Dosage: 20 MG, QD
  4. FLUOXETINA (FLUOXETINE HYDROCHLORIDE) [Concomitant]
     Indication: PRODUCT USED FOR UNKNOWN INDICATION
     Dosage: 20 MG, UNK
  5. HYDROXYCHLOROQUINE [Concomitant]
     Active Substance: HYDROXYCHLOROQUINE
     Indication: PRODUCT USED FOR UNKNOWN INDICATION
     Dosage: 400 MG, UNK
     Route: 048

REACTIONS (27)
  - Myocardial infarction [Unknown]
  - Insomnia [Unknown]
  - Pain of skin [Unknown]
  - Depressed mood [Unknown]
  - Underdose [Not Recovered/Not Resolved]
  - Drug dose omission [Not Recovered/Not Resolved]
  - Renal disorder [Unknown]
  - Feeding disorder [Unknown]
  - Inappropriate schedule of drug administration [Recovered/Resolved]
  - Alopecia [Unknown]
  - Hypoaesthesia [Unknown]
  - Circumstance or information capable of leading to medication error [Recovered/Resolved]
  - Systemic lupus erythematosus [Unknown]
  - Condition aggravated [Unknown]
  - Cutaneous lupus erythematosus [Unknown]
  - Pain [Not Recovered/Not Resolved]
  - Skin injury [Unknown]
  - Adverse drug reaction [Unknown]
  - Drug prescribing error [Recovered/Resolved]
  - Skin disorder [Unknown]
  - Chest pain [Unknown]
  - Drug ineffective [Unknown]
  - Oral pain [Unknown]
  - Hypertension [Unknown]
  - Skin atrophy [Unknown]
  - Swelling [Unknown]
  - Skin haemorrhage [Unknown]
